FAERS Safety Report 19706807 (Version 1)
Quarter: 2021Q3

REPORT INFORMATION
  Report Type: Report from Study
  Country: CO (occurrence: CO)
  Receive Date: 20210817
  Receipt Date: 20210817
  Transmission Date: 20211014
  Serious: Yes (Other)
  Sender: FDA-Public Use
  Company Number: NVSC2021CO179318

PATIENT
  Sex: Female

DRUGS (1)
  1. KISQALI [Suspect]
     Active Substance: RIBOCICLIB
     Indication: BREAST CANCER METASTATIC
     Dosage: UNK
     Route: 048
     Dates: start: 20210727

REACTIONS (6)
  - Somnolence [Unknown]
  - Bone cancer [Unknown]
  - Second primary malignancy [Unknown]
  - Neoplasm [Unknown]
  - Spinal fracture [Unknown]
  - Mass [Unknown]
